FAERS Safety Report 9542376 (Version 1)
Quarter: 2013Q3

REPORT INFORMATION
  Report Type: Spontaneous
  Country: CA (occurrence: CA)
  Receive Date: 20130923
  Receipt Date: 20130923
  Transmission Date: 20140515
  Serious: Yes (Life-Threatening)
  Sender: FDA-Public Use
  Company Number: CA-ASTRAZENECA-2013SE70797

PATIENT
  Age: 50 Year
  Sex: Female

DRUGS (8)
  1. PULMICORT TURBUHALER [Suspect]
     Route: 055
  2. ADVAIR DISKUS [Suspect]
     Dosage: 1 DOSAGE FORMS TWO EVERY ONE WEEK
     Route: 045
  3. ADVAIR DISKUS [Suspect]
     Route: 045
  4. CYANOCOBALAMIN [Concomitant]
     Dosage: NOT SPECIFIED
  5. FLUTICASONE [Concomitant]
  6. LORATADINE [Concomitant]
  7. MONTELUKAST [Concomitant]
     Dosage: NOT SPECIFIED
  8. TERBUTALINE [Concomitant]
     Dosage: NOT SPECIFIED

REACTIONS (6)
  - Hypoaesthesia oral [Recovered/Resolved]
  - Hypersensitivity [Recovered/Resolved]
  - Pruritus [Recovered/Resolved]
  - Swollen tongue [Recovered/Resolved]
  - Urticaria [Recovered/Resolved]
  - Rash erythematous [Recovered/Resolved]
